FAERS Safety Report 23715843 (Version 1)
Quarter: 2024Q2

REPORT INFORMATION
  Report Type: Spontaneous
  Country: GB (occurrence: GB)
  Receive Date: 20240408
  Receipt Date: 20240408
  Transmission Date: 20240716
  Serious: No
  Sender: FDA-Public Use
  Company Number: None

PATIENT
  Age: 1 Year
  Sex: Female
  Weight: 11 kg

DRUGS (11)
  1. IBUPROFEN [Interacting]
     Active Substance: IBUPROFEN
     Indication: Product used for unknown indication
     Dosage: UNK (200MG/5ML, ORAL SUSPENSION)
     Route: 065
     Dates: start: 20240207
  2. ASPIRIN [Concomitant]
     Active Substance: ASPIRIN
     Indication: Product used for unknown indication
     Dosage: 0.5 DOSAGE FORM, OD (TAKE HALF A TABLET (37.5MG) DAILY AT 16:00)
     Route: 065
     Dates: start: 20230801
  3. CAROB [Concomitant]
     Active Substance: CAROB
     Indication: Product used for unknown indication
     Dosage: UNK (ONE SCOOP PER 60ML FLUID)
     Route: 065
     Dates: start: 20230801
  4. COLIEF [Concomitant]
     Indication: Product used for unknown indication
     Dosage: UNK (USE AS DIRECTED)
     Route: 065
     Dates: start: 20221004
  5. FUROSEMIDE [Concomitant]
     Active Substance: FUROSEMIDE
     Indication: Product used for unknown indication
     Dosage: 0.5 MILLILITER, QD ((5MG) 0.5ML TO BE TAKEN ONCE A DAY AT 16:00)
     Route: 065
     Dates: start: 20220901
  6. LACTULOSE [Concomitant]
     Active Substance: LACTULOSE
     Indication: Product used for unknown indication
     Dosage: 5 MILLILITER, BID (5ML TWICE A DAY AT 06:00 AND 18:00)
     Route: 065
     Dates: start: 20230925
  7. OMEPRAZOLE [Concomitant]
     Active Substance: OMEPRAZOLE
     Indication: Product used for unknown indication
     Dosage: 5 MILLILITER, QD (TAKE 5ML (10MG) ONCE DAILY)
     Route: 065
     Dates: start: 20220901
  8. ACETAMINOPHEN [Concomitant]
     Active Substance: ACETAMINOPHEN
     Indication: Product used for unknown indication
     Dosage: 5 MILLILITER, PRN (5ML EVERY 4-6 HOURS WHEN REQUIRED, MAXIMUM 4 DO..)
     Route: 065
     Dates: start: 20230811
  9. SILDENAFIL [Concomitant]
     Active Substance: SILDENAFIL
     Indication: Product used for unknown indication
     Dosage: 0.9 MILLILITER, TID (TAKE 0.9ML (9MG) THREE TIMES A DAY AT 00:00, 08...)
     Route: 065
     Dates: start: 20230801
  10. SPIRONOLACTONE [Concomitant]
     Active Substance: SPIRONOLACTONE
     Indication: Product used for unknown indication
     Dosage: 0.5 MILLILITER, QD ((5MG) 0.5ML TO BE TAKEN ONCE A DAY AT 16:00)
     Route: 065
     Dates: start: 20230920
  11. DIETARY SUPPLEMENT [Concomitant]
     Active Substance: DIETARY SUPPLEMENT
     Indication: Nutritional supplementation
     Dosage: UNK, BID (2 TIMES 200ML BOTTLE DAILY)
     Route: 065
     Dates: start: 20230920, end: 20240130

REACTIONS (1)
  - Drug interaction [Unknown]

NARRATIVE: CASE EVENT DATE: 20240213
